FAERS Safety Report 26195900 (Version 1)
Quarter: 2025Q4

REPORT INFORMATION
  Report Type: Spontaneous
  Country: GB (occurrence: GB)
  Receive Date: 20251224
  Receipt Date: 20251224
  Transmission Date: 20260119
  Serious: Yes (Other)
  Sender: ACCORD
  Company Number: None

PATIENT
  Age: 72 Year
  Sex: Male
  Weight: 131 kg

DRUGS (17)
  1. ATORVASTATIN [Suspect]
     Active Substance: ATORVASTATIN
     Indication: Product used for unknown indication
     Dosage: STRENGTH: 40MG
     Dates: start: 20250717
  2. APIXABAN [Concomitant]
     Active Substance: APIXABAN
     Dosage: TAKE ONE TWICE DAILY
     Dates: start: 20230209
  3. BISOPROLOL [Concomitant]
     Active Substance: BISOPROLOL
     Dosage: TAKE ONE DAILY
     Dates: start: 20230209
  4. CYCLIZINE [Concomitant]
     Active Substance: CYCLIZINE
     Dosage: ONE TO BE TAKEN THREE TIMES A DAY IF NEEDED
     Dates: start: 20230209, end: 20251211
  5. DIGOXIN [Concomitant]
     Active Substance: DIGOXIN
     Dosage: 2 TABLETS DAILY
     Dates: start: 20230209
  6. ISOSORBIDE MONONITRATE [Concomitant]
     Active Substance: ISOSORBIDE MONONITRATE
     Dosage: TAKE TWO EACH MORNING
     Dates: start: 20230209
  7. LANSOPRAZOLE [Concomitant]
     Active Substance: LANSOPRAZOLE
     Dosage: TAKE ONE ONCE DAILY 1/2 AN HOUR BEFORE BREAKFAST
     Dates: start: 20230209
  8. METFORMIN [Concomitant]
     Active Substance: METFORMIN HYDROCHLORIDE
     Dosage: 2 TWICE DAILY
     Dates: start: 20230209
  9. RAMIPRIL [Concomitant]
     Active Substance: RAMIPRIL
     Dosage: TAKE ONE DAILY
     Dates: start: 20230209
  10. HUMALOG [Concomitant]
     Active Substance: INSULIN LISPRO
     Dosage: AS DIRECTED BY THE DIABETIC NURSE SPECIALIST
     Dates: start: 20230801
  11. TOUJEO [Concomitant]
     Active Substance: INSULIN GLARGINE
     Dosage: AS DIRECTED BY THE DIABETIC NURSE AT MIDYORKS
     Dates: start: 20230801
  12. ALBUTEROL [Concomitant]
     Active Substance: ALBUTEROL
     Dosage: 2 PUFFS AS NEEDED (ASTHMA REVIEW DUE)
     Dates: start: 20240510
  13. EPLERENONE [Concomitant]
     Active Substance: EPLERENONE
     Dosage: TAKE ONE DAILY
     Dates: start: 20240717
  14. BECLOMETHASONE DIPROPIONATE [Concomitant]
     Active Substance: BECLOMETHASONE DIPROPIONATE
     Indication: Ill-defined disorder
     Dosage: INHALE 2 DOSES TWICE DAILY
     Dates: start: 20240723
  15. COCODAMOL [Concomitant]
     Active Substance: ACETAMINOPHEN\CODEINE PHOSPHATE
     Indication: Ill-defined disorder
     Dosage: TAKE TWO 4 TIMES/DAY
     Dates: start: 20250130
  16. TIRZEPATIDE [Concomitant]
     Active Substance: TIRZEPATIDE
     Dosage: USE ONE DOSE PER WEEK AS DIRECTED FOR FOUR WEEK
     Dates: start: 20250327
  17. EZETIMIBE [Concomitant]
     Active Substance: EZETIMIBE
     Dosage: TAKE ONE DAILY
     Dates: start: 20251211

REACTIONS (1)
  - Gastrooesophageal reflux disease [Recovered/Resolved]
